FAERS Safety Report 5384641-3 (Version None)
Quarter: 2007Q3

REPORT INFORMATION
  Report Type: 
  Country: None (occurrence: None)
  Receive Date: 20070711
  Receipt Date: 20070710
  Transmission Date: 20080115
  Serious: Yes (Other)
  Sender: FDA-Public Use
  Company Number: TH-BOEHRINGER INGELHEIM PHARMACEUTICALS, INC.-2007-BP-16265SG

PATIENT
  Sex: Female
  Weight: 35.5 kg

DRUGS (3)
  1. VIRAMUNE [Suspect]
     Indication: HIV INFECTION
     Route: 048
     Dates: start: 20020801, end: 20020909
  2. INDINAVIR [Concomitant]
     Indication: HIV INFECTION
     Route: 048
     Dates: start: 20020624, end: 20020909
  3. RITONAVIR [Concomitant]
     Indication: HIV INFECTION
     Route: 048
     Dates: start: 20020624, end: 20020909

REACTIONS (1)
  - RASH [None]
